FAERS Safety Report 25337124 (Version 3)
Quarter: 2025Q3

REPORT INFORMATION
  Report Type: Spontaneous
  Country: US (occurrence: US)
  Receive Date: 20250520
  Receipt Date: 20250828
  Transmission Date: 20251021
  Serious: Yes (Other)
  Sender: PFIZER
  Company Number: US-PFIZER INC-202500103022

PATIENT
  Age: 66 Year
  Sex: Male

DRUGS (2)
  1. CIBINQO [Suspect]
     Active Substance: ABROCITINIB
     Dates: start: 20241002
  2. CIBINQO [Suspect]
     Active Substance: ABROCITINIB
     Dates: start: 20241101, end: 20250815

REACTIONS (3)
  - Thrombocytopenia [Not Recovered/Not Resolved]
  - Abdominal pain [Unknown]
  - Hepatic enzyme increased [Unknown]

NARRATIVE: CASE EVENT DATE: 20250813
